FAERS Safety Report 4596399-6 (Version None)
Quarter: 2005Q1

REPORT INFORMATION
  Report Type: 
  Country: None (occurrence: None)
  Receive Date: 20050228
  Receipt Date: 20050214
  Transmission Date: 20050727
  Serious: Yes (Death, Other)
  Sender: FDA-Public Use
  Company Number: 2005032041

PATIENT
  Age: 41 Year
  Sex: Male

DRUGS (1)
  1. CELECOXIB (CELECOXIB) [Suspect]
     Indication: RHEUMATOID ARTHRITIS
     Dosage: UNKNOWN (UNKNOWN); ORAL
     Route: 048
     Dates: start: 20031101

REACTIONS (8)
  - BODY TEMPERATURE DECREASED [None]
  - DEPRESSION [None]
  - DYSPNOEA [None]
  - FEELING ABNORMAL [None]
  - HYPERTENSION [None]
  - LOSS OF CONSCIOUSNESS [None]
  - MYOCARDIAL INFARCTION [None]
  - PALLOR [None]
